FAERS Safety Report 17901927 (Version 1)
Quarter: 2020Q2

REPORT INFORMATION
  Report Type: Spontaneous
  Country: US (occurrence: US)
  Receive Date: 20200616
  Receipt Date: 20200616
  Transmission Date: 20200714
  Serious: No
  Sender: FDA-Public Use
  Company Number: US-PERRIGO-19US011343

PATIENT
  Sex: Female
  Weight: 104.31 kg

DRUGS (2)
  1. RANITIDINE HYDROCHLORIDE. [Suspect]
     Active Substance: RANITIDINE HYDROCHLORIDE
     Indication: DYSPEPSIA
     Dosage: 150 MG, QD PRN
     Route: 048
     Dates: start: 2018, end: 201809
  2. RANITIDINE HYDROCHLORIDE. [Suspect]
     Active Substance: RANITIDINE HYDROCHLORIDE
     Dosage: 150 MG, QD PRN
     Route: 048
     Dates: start: 2018

REACTIONS (1)
  - Expired product administered [Recovered/Resolved]

NARRATIVE: CASE EVENT DATE: 2018
